FAERS Safety Report 12928542 (Version 2)
Quarter: 2017Q2

REPORT INFORMATION
  Report Type: Report from Study
  Country: ZA (occurrence: ZA)
  Receive Date: 20161110
  Receipt Date: 20170508
  Transmission Date: 20170830
  Serious: Yes (Death, Hospitalization, Other)
  Sender: FDA-Public Use
  Company Number: ZA-AMGEN-ZAFSL2016157166

PATIENT
  Age: 58 Year
  Sex: Female

DRUGS (1)
  1. ARANESP [Suspect]
     Active Substance: DARBEPOETIN ALFA
     Indication: RENAL FAILURE
     Dosage: 100 MCG, Q2WK
     Route: 065
     Dates: start: 201406, end: 201607

REACTIONS (2)
  - Hospitalisation [Unknown]
  - Death [Fatal]

NARRATIVE: CASE EVENT DATE: 20160706
